FAERS Safety Report 23661660 (Version 1)
Quarter: 2024Q1

REPORT INFORMATION
  Report Type: Report from Study
  Country: NL (occurrence: NL)
  Receive Date: 20240322
  Receipt Date: 20240322
  Transmission Date: 20240409
  Serious: Yes (Other)
  Sender: FDA-Public Use
  Company Number: NL-ACTELION-A-CH2019-190977

PATIENT
  Age: 45 Year
  Sex: Female
  Weight: 82 kg

DRUGS (22)
  1. OPSUMIT [Suspect]
     Active Substance: MACITENTAN
     Indication: Pulmonary arterial hypertension
     Dosage: 10 MG, QD
     Route: 048
     Dates: start: 20190320
  2. UPTRAVI [Suspect]
     Active Substance: SELEXIPAG
     Indication: Pulmonary arterial hypertension
     Dosage: 400 MCG, QD
     Route: 048
     Dates: start: 20190512, end: 20190521
  3. UPTRAVI [Suspect]
     Active Substance: SELEXIPAG
     Dosage: 800 MCG, QD
     Route: 048
     Dates: start: 20190521, end: 20190527
  4. UPTRAVI [Suspect]
     Active Substance: SELEXIPAG
     Dosage: 1200 MCG, QD
     Route: 048
     Dates: start: 20190527, end: 20190605
  5. UPTRAVI [Suspect]
     Active Substance: SELEXIPAG
     Dosage: 1600 MCG, QD
     Route: 048
     Dates: start: 20190605, end: 20190612
  6. UPTRAVI [Suspect]
     Active Substance: SELEXIPAG
     Dosage: 2000 MCG, QD
     Route: 048
     Dates: start: 20190612, end: 20190619
  7. UPTRAVI [Suspect]
     Active Substance: SELEXIPAG
     Dosage: 2400 MCG, QD
     Route: 048
     Dates: start: 20190619, end: 20190701
  8. UPTRAVI [Suspect]
     Active Substance: SELEXIPAG
     Dosage: 2800 MCG, QD
     Route: 048
     Dates: start: 20190701, end: 20190707
  9. UPTRAVI [Suspect]
     Active Substance: SELEXIPAG
     Dosage: 3200 MCG, QD
     Route: 048
     Dates: start: 20190707, end: 20190717
  10. UPTRAVI [Suspect]
     Active Substance: SELEXIPAG
     Dosage: 3000 MCG, QD
     Route: 048
     Dates: start: 20190717, end: 20191128
  11. UPTRAVI [Suspect]
     Active Substance: SELEXIPAG
     Dosage: 2800 MCG, QD
     Route: 048
     Dates: start: 20191128
  12. UPTRAVI [Suspect]
     Active Substance: SELEXIPAG
     Dosage: 1400 MCG, QD
     Route: 048
  13. SILDENAFIL [Concomitant]
     Active Substance: SILDENAFIL
     Indication: Pulmonary arterial hypertension
     Dosage: 60 MG, QD
     Route: 048
     Dates: start: 20190325
  14. OXAZEPAM [Concomitant]
     Active Substance: OXAZEPAM
     Indication: Anxiety
     Dosage: UNK
     Route: 048
     Dates: start: 2018, end: 20190327
  15. FUROSEMIDE [Concomitant]
     Active Substance: FUROSEMIDE
     Indication: Cardiac failure
     Dosage: UNK
     Dates: start: 20190221, end: 20190224
  16. FUROSEMIDE [Concomitant]
     Active Substance: FUROSEMIDE
     Dosage: UNK
     Dates: start: 20190225
  17. DORZOLAMIDE [Concomitant]
     Active Substance: DORZOLAMIDE
     Indication: Ocular hypertension
     Dosage: UNK, PRN
  18. BRIMONIDINE [Concomitant]
     Active Substance: BRIMONIDINE TARTRATE
     Indication: Ocular hypertension
     Dosage: UNK
  19. SPIRONOLACTONE [Concomitant]
     Active Substance: SPIRONOLACTONE
     Indication: Cardiac failure
     Dosage: UNK
     Route: 048
  20. METOPROLOL [Concomitant]
     Active Substance: METOPROLOL
     Indication: Hypertension
     Dosage: UNK
     Route: 048
  21. PREDNISOLONE [Concomitant]
     Active Substance: PREDNISOLONE
     Indication: Uveitis
     Dosage: UNK
  22. PANTOPRAZOLE [Concomitant]
     Active Substance: PANTOPRAZOLE
     Indication: Dyspepsia
     Dosage: UNK
     Route: 048
     Dates: start: 201906

REACTIONS (17)
  - Papulopustular rosacea [Recovered/Resolved]
  - Biopsy skin [Recovered/Resolved]
  - Erythema [Recovered/Resolved]
  - Blood loss anaemia [Recovered/Resolved]
  - Haemoglobin decreased [Recovered/Resolved]
  - Hypertension [Recovered/Resolved]
  - Condition aggravated [Recovering/Resolving]
  - Pain in extremity [Recovered/Resolved]
  - Flushing [Recovered/Resolved]
  - Headache [Recovered/Resolved]
  - Pain in jaw [Recovered/Resolved]
  - Malaise [Recovered/Resolved]
  - Dyspepsia [Unknown]
  - Defaecation urgency [Unknown]
  - Haemorrhoids [Unknown]
  - Haemorrhoidal haemorrhage [Unknown]
  - Haemorrhoid operation [Recovering/Resolving]

NARRATIVE: CASE EVENT DATE: 20190321
